FAERS Safety Report 9398506 (Version 1)
Quarter: 2013Q3

REPORT INFORMATION
  Report Type: Spontaneous
  Country: FR (occurrence: FR)
  Receive Date: 20130712
  Receipt Date: 20130712
  Transmission Date: 20140515
  Serious: No
  Sender: FDA-Public Use
  Company Number: FR-JNJFOC-20130703905

PATIENT
  Age: 88 Year
  Sex: Female

DRUGS (2)
  1. DUROGESIC [Suspect]
     Indication: PRODUCT USED FOR UNKNOWN INDICATION
     Route: 062
  2. INSULIN [Concomitant]
     Route: 065

REACTIONS (1)
  - Drug prescribing error [Unknown]
